FAERS Safety Report 9431023 (Version 2)
Quarter: 2013Q4

REPORT INFORMATION
  Report Type: Spontaneous
  Country: GB (occurrence: GB)
  Receive Date: 20130730
  Receipt Date: 20131106
  Transmission Date: 20140711
  Serious: Yes (Death, Other)
  Sender: FDA-Public Use
  Company Number: GB-TEVA-421004ISR

PATIENT
  Sex: Male

DRUGS (1)
  1. WARFARIN [Suspect]
     Indication: ATRIAL FIBRILLATION
     Dosage: PATIENT HAD BEEN ON WARFARIN THERAPY FOR SEVERAL YEARS
     Dates: end: 20121126

REACTIONS (3)
  - Sudden death [Fatal]
  - Withdrawal syndrome [Not Recovered/Not Resolved]
  - Rectal haemorrhage [Unknown]
